FAERS Safety Report 9367328 (Version 2)
Quarter: 2015Q4

REPORT INFORMATION
  Report Type: Spontaneous
  Country: US (occurrence: US)
  Receive Date: 20130625
  Receipt Date: 20151019
  Transmission Date: 20160305
  Serious: No
  Sender: FDA-Public Use
  Company Number: US-009507513-1306USA010032

PATIENT
  Age: 52 Year
  Sex: Male

DRUGS (6)
  1. BOCEPREVIR [Suspect]
     Active Substance: BOCEPREVIR
     Indication: CHRONIC HEPATITIS C
     Dosage: 4 DF, TID (2 IN 1 D)
     Route: 065
     Dates: start: 20130614
  2. PEGASYS [Suspect]
     Active Substance: PEGINTERFERON ALFA-2A
     Indication: CHRONIC HEPATITIS C
     Dosage: 180 MICROGRAM (PROCLICK INJECTOR), QW
     Route: 065
     Dates: start: 20130522
  3. PEGASYS [Suspect]
     Active Substance: PEGINTERFERON ALFA-2A
     Dosage: 135 MICROGRAM, QW
     Route: 058
  4. COPEGUS [Suspect]
     Active Substance: RIBAVIRIN
     Dosage: 2 TAB OF 200MG Q AM (400MG)
     Route: 048
  5. COPEGUS [Suspect]
     Active Substance: RIBAVIRIN
     Indication: CHRONIC HEPATITIS C
     Dosage: 600 MG Q AM 400MG Q PM (1000 MG, QD)
     Route: 048
     Dates: start: 20130522
  6. PEGASYS [Suspect]
     Active Substance: PEGINTERFERON ALFA-2A
     Dosage: 90 MICROGRAM, QW
     Route: 058

REACTIONS (9)
  - Pain [Unknown]
  - Hyperhidrosis [Unknown]
  - Drug dose omission [Unknown]
  - Tremor [Unknown]
  - Pyrexia [Unknown]
  - Somnolence [Unknown]
  - Abdominal pain upper [Unknown]
  - Fatigue [Unknown]
  - Nasopharyngitis [Unknown]

NARRATIVE: CASE EVENT DATE: 2013
